FAERS Safety Report 9010208 (Version 1)
Quarter: 2013Q1

REPORT INFORMATION
  Report Type: Spontaneous
  Country: US (occurrence: US)
  Receive Date: 20130110
  Receipt Date: 20130110
  Transmission Date: 20140127
  Serious: Yes (Other)
  Sender: FDA-Public Use
  Company Number: US-009507513-0907USA03790

PATIENT
  Age: 32 Year
  Sex: Female
  Weight: 78.47 kg

DRUGS (6)
  1. SINGULAIR [Suspect]
     Indication: ASTHMA
     Dosage: 10 MG, QD
     Route: 048
     Dates: start: 20040216, end: 20081125
  2. ALBUTEROL [Concomitant]
  3. CALTRATE WITH VITAMIN D [Concomitant]
  4. FEXOFENADINE HYDROCHLORIDE [Concomitant]
  5. FLOVENT HFA [Concomitant]
  6. VITAMIN D (UNSPECIFIED) [Concomitant]
     Dosage: 1000 U, UNK

REACTIONS (1)
  - Mood swings [Unknown]
